FAERS Safety Report 9123445 (Version 1)
Quarter: 2013Q1

REPORT INFORMATION
  Report Type: Report from Study
  Country: US (occurrence: US)
  Receive Date: 20130115
  Receipt Date: 20130115
  Transmission Date: 20140127
  Serious: No
  Sender: FDA-Public Use
  Company Number: US-VERTEX PHARMACEUTICALS INC.-2013-000554

PATIENT
  Age: 62 Year
  Sex: Male
  Weight: 104 kg

DRUGS (18)
  1. VX-950 (TELAPREVIR) [Suspect]
     Indication: HEPATITIS C
     Dosage: 750 MG, TID
     Route: 048
  2. PEGASYS [Suspect]
     Indication: HEPATITIS C
     Dosage: 180 ?G, UNK
     Route: 058
  3. RIBAVIRIN [Suspect]
     Indication: HEPATITIS C
     Dosage: 200 MG, UNK
     Route: 048
  4. KYTRIL [Concomitant]
     Dosage: 1 MG, UNK
     Route: 048
  5. ATIVAN [Concomitant]
     Dosage: 0.5 MG, UNK
     Route: 048
  6. LASIX [Concomitant]
     Dosage: 20 MG, UNK
     Route: 048
  7. PREDNISONE [Concomitant]
     Dosage: 10 MG, UNK
     Route: 048
  8. NEURONTIN [Concomitant]
     Dosage: 300 MG, UNK
     Route: 048
  9. MYFORTIC [Concomitant]
     Dosage: 180 MG, UNK
     Route: 048
  10. LANTUS [Concomitant]
     Dosage: 100 ML, UNK
     Route: 058
  11. METOPROLOL [Concomitant]
     Dosage: 100 MG, UNK
     Route: 048
  12. ZOFRAN [Concomitant]
     Dosage: 4 MG, UNK
     Route: 048
  13. NEXIUM [Concomitant]
     Dosage: 20 MG, UNK
     Route: 048
  14. RESTORIL [Concomitant]
     Dosage: 15 MG, UNK
     Route: 048
  15. PROGRAF [Concomitant]
     Dosage: 1 MG, UNK
     Route: 048
  16. IMODIUM ADVANCED [Concomitant]
     Route: 048
  17. IRON [Concomitant]
     Route: 048
  18. MULTIVITAMIN [Concomitant]
     Route: 048

REACTIONS (6)
  - Influenza like illness [Unknown]
  - Fluid retention [Unknown]
  - Fatigue [Unknown]
  - Rash [Unknown]
  - Nausea [Unknown]
  - Diarrhoea [Unknown]
